FAERS Safety Report 20040996 (Version 2)
Quarter: 2021Q4

REPORT INFORMATION
  Report Type: Spontaneous
  Country: US (occurrence: US)
  Receive Date: 20211107
  Receipt Date: 20211128
  Transmission Date: 20220303
  Serious: No
  Sender: FDA-Public Use
  Company Number: US-ELI_LILLY_AND_COMPANY-US202110012488

PATIENT
  Sex: Male

DRUGS (2)
  1. GLUCAGON [Suspect]
     Active Substance: GLUCAGON
     Indication: Product used for unknown indication
     Dosage: UNK UNK, UNKNOWN
     Route: 065
     Dates: start: 2015
  2. LANTUS [Concomitant]
     Active Substance: INSULIN GLARGINE
     Indication: Product used for unknown indication

REACTIONS (5)
  - Visual impairment [Unknown]
  - Gait disturbance [Unknown]
  - Pain [Unknown]
  - Ear disorder [Unknown]
  - Diabetes mellitus inadequate control [Unknown]
